FAERS Safety Report 9776414 (Version 2)
Quarter: 2013Q4

REPORT INFORMATION
  Report Type: Spontaneous
  Country: US (occurrence: US)
  Receive Date: 20131220
  Receipt Date: 20131231
  Transmission Date: 20140711
  Serious: No
  Sender: FDA-Public Use
  Company Number: US-BIOGENIDEC-2013BI120333

PATIENT
  Age: 51 Year
  Sex: Female
  Weight: 68 kg

DRUGS (10)
  1. TECFIDERA [Suspect]
     Indication: MULTIPLE SCLEROSIS
     Route: 048
  2. TECFIDERA [Suspect]
     Indication: MULTIPLE SCLEROSIS
     Route: 048
     Dates: end: 20131215
  3. CYMBALTA [Concomitant]
  4. VITAMIN C [Concomitant]
  5. B COMPLEX [Concomitant]
  6. VITAMIN E [Concomitant]
  7. VITAMIN D [Concomitant]
  8. VITAMIN A [Concomitant]
  9. AVIANE [Concomitant]
  10. FISH OIL [Concomitant]

REACTIONS (8)
  - Dyspnoea [Unknown]
  - Headache [Unknown]
  - Fatigue [Unknown]
  - Nasal congestion [Unknown]
  - Muscular weakness [Unknown]
  - Chest pain [Unknown]
  - Hypoaesthesia oral [Unknown]
  - Inappropriate schedule of drug administration [Unknown]
